FAERS Safety Report 6713115-X (Version None)
Quarter: 2010Q2

REPORT INFORMATION
  Report Type: 
  Country: None (occurrence: None)
  Receive Date: 20100503
  Receipt Date: 20100419
  Transmission Date: 20101027
  Serious: Yes (Other)
  Sender: FDA-Public Use
  Company Number: BR-1181657

PATIENT
  Age: 60 Year
  Sex: Male

DRUGS (1)
  1. TIMOLOL MALEATE [Suspect]
     Indication: INTRAOCULAR PRESSURE INCREASED
     Dosage: 1 GTT BID OU OPHTHALMIC
     Route: 047
     Dates: start: 19990101

REACTIONS (7)
  - ACNE [None]
  - CALCINOSIS [None]
  - DYSHIDROSIS [None]
  - LORDOSIS [None]
  - RASH [None]
  - SCAB [None]
  - SKIN EXFOLIATION [None]
